FAERS Safety Report 19382614 (Version 3)
Quarter: 2021Q3

REPORT INFORMATION
  Report Type: Spontaneous
  Country: US (occurrence: US)
  Receive Date: 20210607
  Receipt Date: 20210816
  Transmission Date: 20211014
  Serious: Yes (Other)
  Sender: FDA-Public Use
  Company Number: US-PFIZER INC-2021388385

PATIENT
  Age: 63 Year
  Sex: Female

DRUGS (2)
  1. RETACRIT [Suspect]
     Active Substance: EPOETIN ALFA-EPBX
     Dosage: 20,000 UNITS Q 2 WEEKS (EVERY TWO WEEKS)
  2. RETACRIT [Suspect]
     Active Substance: EPOETIN ALFA-EPBX
     Dosage: 1 ML, MONTHLY

REACTIONS (4)
  - Chronic kidney disease [Unknown]
  - Internal haemorrhage [Unknown]
  - Anaemia [Unknown]
  - Off label use [Unknown]
